FAERS Safety Report 21723750 (Version 1)
Quarter: 2022Q4

REPORT INFORMATION
  Report Type: Report from Study
  Country: CN (occurrence: CN)
  Receive Date: 20221213
  Receipt Date: 20221213
  Transmission Date: 20230113
  Serious: Yes (Other)
  Sender: FDA-Public Use
  Company Number: CN-TAKEDA-2022TUS060639

PATIENT
  Age: 65 Year
  Sex: Female
  Weight: 55 kg

DRUGS (36)
  1. IXAZOMIB [Suspect]
     Active Substance: IXAZOMIB
     Indication: Plasma cell myeloma
     Dosage: 4 MILLIGRAM
     Route: 048
     Dates: start: 20211217
  2. DEXAMETHASONE [Suspect]
     Active Substance: DEXAMETHASONE
     Indication: Product used for unknown indication
     Dosage: UNK
     Route: 065
  3. POMALIDOMIDE [Suspect]
     Active Substance: POMALIDOMIDE
     Indication: Product used for unknown indication
     Dosage: UNK
     Route: 065
  4. METHYLCOBALAMIN [Concomitant]
     Active Substance: METHYLCOBALAMIN
     Indication: Vitamin supplementation
     Dosage: 0.5 MILLIGRAM, QD
     Route: 048
     Dates: start: 20201214, end: 20211214
  5. Calcium and zinc gluconates [Concomitant]
     Indication: Mineral supplementation
     Dosage: 10 MILLILITER, QD
     Route: 048
     Dates: start: 20201119, end: 20211214
  6. ESZOPICLONE [Concomitant]
     Active Substance: ESZOPICLONE
     Indication: Sleep disorder
     Dosage: 3 MILLIGRAM, QD
     Route: 048
     Dates: start: 20201118, end: 20211215
  7. MUCOPOLYSACCHARIDE POLYSULFATE [Concomitant]
     Indication: Vascular disorder prophylaxis
     Dosage: UNK, QD
     Route: 065
     Dates: start: 20201215, end: 20211215
  8. METHOXYPHENAMINE HYDROCHLORIDE [Concomitant]
     Active Substance: METHOXYPHENAMINE HYDROCHLORIDE
     Indication: Cough
     Dosage: 25 MILLIGRAM, QD
     Route: 048
     Dates: start: 20201118, end: 20211127
  9. CALCIUM GLUCONATE [Concomitant]
     Active Substance: CALCIUM GLUCONATE
     Indication: Mineral supplementation
     Dosage: 1 GRAM, QD
     Route: 042
     Dates: start: 20201118, end: 20211126
  10. DEXAMETHASONE SODIUM PHOSPHATE [Concomitant]
     Active Substance: DEXAMETHASONE SODIUM PHOSPHATE
     Indication: Plasma cell myeloma
     Dosage: 20 MILLIGRAM
     Route: 042
     Dates: start: 20201119, end: 20211120
  11. LANSOPRAZOLE [Concomitant]
     Active Substance: LANSOPRAZOLE
     Indication: Prophylaxis
     Dosage: 30 MILLIGRAM
     Route: 042
     Dates: start: 20201119, end: 20211119
  12. METHIOUINE AND VITAMIN B1 [Concomitant]
     Indication: Prophylaxis
     Dosage: 200 MILLIGRAM, QD
     Route: 042
     Dates: start: 20201119, end: 20211126
  13. FAMOTIDINE [Concomitant]
     Active Substance: FAMOTIDINE
     Indication: Prophylaxis
     Dosage: 20 MILLIGRAM, QD
     Route: 042
     Dates: start: 20201119, end: 20211126
  14. MOXIFLOXACIN HYDROCHLORIDE [Concomitant]
     Active Substance: MOXIFLOXACIN HYDROCHLORIDE
     Indication: Pneumonia
     Dosage: 250 MILLILITER
     Route: 042
     Dates: start: 20201121, end: 20211126
  15. AMINOPHYLLINE [Concomitant]
     Active Substance: AMINOPHYLLINE
     Indication: Asthma
     Dosage: 0.125 GRAM, QD
     Route: 042
     Dates: start: 20201122, end: 20211124
  16. CODEINE PHOSPHATE [Concomitant]
     Active Substance: CODEINE PHOSPHATE
     Indication: Antitussive therapy
     Dosage: 30 MILLIGRAM, QD
     Route: 048
     Dates: start: 20201118, end: 20211127
  17. COMPOUND CHLORHEXIDINE GARGLE [Concomitant]
     Indication: Infection prophylaxis
     Dosage: 10 MILLIGRAM, TID
     Dates: start: 20201118, end: 20211118
  18. TORSEMIDE [Concomitant]
     Active Substance: TORSEMIDE
     Indication: Diuretic therapy
     Dosage: 20 MILLIGRAM, QD
     Route: 042
     Dates: start: 20201118, end: 20211119
  19. AZITHROMYCIN [Concomitant]
     Active Substance: AZITHROMYCIN
     Indication: Inflammation
     Dosage: 0.25 GRAM, QD
     Route: 042
     Dates: start: 20201118, end: 20211118
  20. CYCLOPHOSPHAMIDE [Concomitant]
     Active Substance: CYCLOPHOSPHAMIDE
     Indication: Plasma cell myeloma
     Dosage: 444 MILLIGRAM, QD
     Route: 042
     Dates: start: 20201119, end: 20211119
  21. BORTEZOMIB [Concomitant]
     Active Substance: BORTEZOMIB
     Indication: Plasma cell myeloma
     Dosage: 1.48 MILLIGRAM, QD
     Route: 058
     Dates: start: 20201119, end: 20211119
  22. ONDANSETRON [Concomitant]
     Active Substance: ONDANSETRON
     Indication: Vomiting
     Dosage: 8 MILLIGRAM, QD
     Route: 042
     Dates: start: 20201119, end: 20211119
  23. SODIUM BICARBONATE [Concomitant]
     Active Substance: SODIUM BICARBONATE
     Indication: Urine alkalinisation therapy
     Dosage: 40 MILLIGRAM, QD
     Route: 042
     Dates: start: 20201119, end: 20211119
  24. POTASSIUM CHLORIDE [Concomitant]
     Active Substance: POTASSIUM CHLORIDE
     Indication: Dehydration
     Dosage: 3 GRAM, QD
     Route: 042
     Dates: start: 20201119, end: 20211120
  25. POTASSIUM CHLORIDE [Concomitant]
     Active Substance: POTASSIUM CHLORIDE
     Indication: Mineral supplementation
     Dosage: 2 GRAM, QD
     Dates: start: 20201119, end: 20211125
  26. INSULIN NOS [Concomitant]
     Active Substance: INSULIN NOS
     Indication: Blood glucose abnormal
     Dosage: 4 INTERNATIONAL UNIT, QD
     Route: 042
     Dates: start: 20201119, end: 20211119
  27. MONTELUKAST [Concomitant]
     Active Substance: MONTELUKAST SODIUM
     Indication: Asthma
     Dosage: 10 MILLIGRAM, QD
     Route: 048
     Dates: start: 20201120, end: 20211120
  28. MONTELUKAST [Concomitant]
     Active Substance: MONTELUKAST SODIUM
     Indication: Cough
  29. MOXIFLOXACIN HYDROCHLORIDE [Concomitant]
     Active Substance: MOXIFLOXACIN HYDROCHLORIDE
     Indication: Infection
     Dosage: 205 MILLILITER, QD
     Route: 042
     Dates: start: 20201121, end: 20211121
  30. VITAMIN C [Concomitant]
     Active Substance: ASCORBIC ACID
     Indication: Hypersensitivity
     Dosage: 2 GRAM, QD
     Route: 042
     Dates: start: 20201123, end: 20211123
  31. ASPIRIN [Concomitant]
     Active Substance: ASPIRIN
     Indication: Anticoagulant therapy
     Dosage: 100 MILLIGRAM, QD
     Route: 048
     Dates: start: 20201217
  32. ASPIRIN [Concomitant]
     Active Substance: ASPIRIN
     Indication: Pneumonia
  33. OMEPRAZOLE [Concomitant]
     Active Substance: OMEPRAZOLE
     Indication: Prophylaxis
     Dosage: 20 MILLIGRAM, QD
     Route: 048
     Dates: start: 20201207
  34. LEVOTHYROXINE [Concomitant]
     Active Substance: LEVOTHYROXINE
     Indication: Thyroid mass
     Dosage: 25 MICROGRAM, QOD
     Route: 048
     Dates: start: 2011
  35. LEVOTHYROXINE [Concomitant]
     Active Substance: LEVOTHYROXINE
     Dosage: 50 MICROGRAM, QOD
     Route: 048
     Dates: start: 2011
  36. LORATADINE [Concomitant]
     Active Substance: LORATADINE
     Indication: Allergy prophylaxis
     Dosage: 10 MILLIGRAM
     Route: 048
     Dates: start: 20211217

REACTIONS (9)
  - Hypokalaemia [Not Recovered/Not Resolved]
  - Hypocalcaemia [Not Recovered/Not Resolved]
  - Hyponatraemia [Not Recovered/Not Resolved]
  - Hypoalbuminaemia [Not Recovered/Not Resolved]
  - Glucose tolerance impaired [Not Recovered/Not Resolved]
  - Anaemia [Not Recovered/Not Resolved]
  - Pyrexia [Recovered/Resolved]
  - Platelet count decreased [Not Recovered/Not Resolved]
  - Off label use [Unknown]

NARRATIVE: CASE EVENT DATE: 20211217
